FAERS Safety Report 13254943 (Version 2)
Quarter: 2017Q1

REPORT INFORMATION
  Report Type: Report from Study
  Country: US (occurrence: US)
  Receive Date: 20170221
  Receipt Date: 20170304
  Transmission Date: 20170428
  Serious: No
  Sender: FDA-Public Use
  Company Number: US-AMGEN-USASL2017024281

PATIENT
  Age: 51 Year
  Sex: Female

DRUGS (1)
  1. ENBREL [Suspect]
     Active Substance: ETANERCEPT
     Indication: RHEUMATOID ARTHRITIS
     Dosage: 50 MG, UNK
     Route: 065

REACTIONS (5)
  - Injection site mass [Recovering/Resolving]
  - Injection site erythema [Recovering/Resolving]
  - Injection site warmth [Recovering/Resolving]
  - Drug hypersensitivity [Unknown]
  - Injection site swelling [Recovering/Resolving]

NARRATIVE: CASE EVENT DATE: 201702
